FAERS Safety Report 21805508 (Version 2)
Quarter: 2023Q1

REPORT INFORMATION
  Report Type: Spontaneous
  Country: DE (occurrence: DE)
  Receive Date: 20230102
  Receipt Date: 20230126
  Transmission Date: 20230417
  Serious: Yes (Other)
  Sender: FDA-Public Use
  Company Number: DE-002147023-NVSC2022DE276340

PATIENT
  Sex: Female
  Weight: 85 kg

DRUGS (6)
  1. AIMOVIG [Suspect]
     Active Substance: ERENUMAB-AOOE
     Indication: Migraine prophylaxis
     Dosage: 70 MG, FIRST INJECTION
     Route: 065
  2. AIMOVIG [Suspect]
     Active Substance: ERENUMAB-AOOE
     Dosage: UNK, SECOND INJECTION
     Route: 065
  3. AIMOVIG [Suspect]
     Active Substance: ERENUMAB-AOOE
     Dosage: 70 MG, 28D
     Route: 058
     Dates: start: 20220914, end: 20221121
  4. SUMATRIPTAN [Concomitant]
     Active Substance: SUMATRIPTAN
     Indication: Migraine
     Dosage: UNK, PRN
     Route: 048
     Dates: start: 201903
  5. AMITRIPTYLINE [Concomitant]
     Active Substance: AMITRIPTYLINE
     Indication: Pain
     Dosage: UNK UNK, QD (EVENING)
     Route: 048
     Dates: start: 201903
  6. NAPROXEN [Concomitant]
     Active Substance: NAPROXEN
     Indication: Headache
     Dosage: UNK, PRN
     Route: 048
     Dates: start: 201903

REACTIONS (4)
  - Angina pectoris [Recovered/Resolved]
  - Coronavirus infection [Recovered/Resolved with Sequelae]
  - Hypertension [Recovering/Resolving]
  - Dyspnoea [Unknown]

NARRATIVE: CASE EVENT DATE: 20221001
